FAERS Safety Report 4452925-9 (Version None)
Quarter: 2004Q3

REPORT INFORMATION
  Report Type: 
  Country: None (occurrence: None)
  Receive Date: 20040916
  Receipt Date: 20040901
  Transmission Date: 20050211
  Serious: Yes (Death, Life-Threatening, Hospitalization)
  Sender: FDA-Public Use
  Company Number: 2004-BP-07564RO

PATIENT
  Age: 73 Year
  Sex: Female

DRUGS (4)
  1. DEXAMETHASONE [Suspect]
     Indication: MULTIPLE MYELOMA
     Dosage: 40 MG DAILY X 4 (NR), PO
     Route: 048
     Dates: start: 20020126, end: 20020212
  2. DEXAMETHASONE [Suspect]
     Indication: MULTIPLE MYELOMA
     Dosage: 40 MG DAILY X 4 (NR), PO
     Route: 048
     Dates: start: 20020126, end: 20020212
  3. GENASENSE [Suspect]
     Indication: MULTIPLE MYELOMA
     Dosage: 320 MG
     Dates: start: 20020123, end: 20020213
  4. GENASENSE (BCL-2 ANTISENSE OLIGONUCLEOTIDE) [Suspect]
     Dosage: 320 MG
     Dates: start: 20020123, end: 20020130

REACTIONS (2)
  - DISEASE PROGRESSION [None]
  - RESPIRATORY FAILURE [None]
